FAERS Safety Report 18318622 (Version 2)
Quarter: 2021Q1

REPORT INFORMATION
  Report Type: Spontaneous
  Country: US (occurrence: US)
  Receive Date: 20200928
  Receipt Date: 20210211
  Transmission Date: 20210419
  Serious: No
  Sender: FDA-Public Use
  Company Number: US-JNJFOC-20200942728

PATIENT
  Age: 36 Year
  Sex: Male

DRUGS (10)
  1. RISPERDAL [Suspect]
     Active Substance: RISPERIDONE
     Route: 065
     Dates: start: 2020, end: 20200902
  2. LOXITANE [LOXAPINE SUCCINATE] [Concomitant]
     Indication: PRODUCT USED FOR UNKNOWN INDICATION
     Route: 065
  3. LUMATEPERONE. [Suspect]
     Active Substance: LUMATEPERONE
     Indication: COMPULSIONS
  4. LUMATEPERONE. [Suspect]
     Active Substance: LUMATEPERONE
     Indication: THOUGHT BLOCKING
  5. LUMATEPERONE. [Suspect]
     Active Substance: LUMATEPERONE
     Indication: PSYCHOTIC DISORDER
  6. LUMATEPERONE. [Suspect]
     Active Substance: LUMATEPERONE
     Indication: THINKING ABNORMAL
  7. LUMATEPERONE. [Suspect]
     Active Substance: LUMATEPERONE
     Indication: SCHIZOPHRENIA
     Route: 048
     Dates: start: 20200902, end: 202009
  8. RISPERDAL [Suspect]
     Active Substance: RISPERIDONE
     Indication: SCHIZOPHRENIA
     Route: 065
     Dates: start: 20200902, end: 2020
  9. LUMATEPERONE. [Suspect]
     Active Substance: LUMATEPERONE
     Indication: DELUSION
     Dosage: AT NIGHT FOR ORGANIZATION
     Route: 048
     Dates: start: 202009
  10. LOXITANE [LOXAPINE SUCCINATE] [Concomitant]
     Route: 065

REACTIONS (7)
  - Lacrimation increased [Recovered/Resolved]
  - Disinhibition [Unknown]
  - Asthenopia [Recovered/Resolved]
  - Dysarthria [Recovering/Resolving]
  - Somnolence [Unknown]
  - Sedation [Unknown]
  - Halo vision [Recovered/Resolved]

NARRATIVE: CASE EVENT DATE: 2020
